FAERS Safety Report 21069948 (Version 5)
Quarter: 2024Q3

REPORT INFORMATION
  Report Type: Spontaneous
  Country: US (occurrence: US)
  Receive Date: 20220712
  Receipt Date: 20240722
  Transmission Date: 20241017
  Serious: No
  Sender: ASTELLAS
  Company Number: US-ASTELLAS-2021US030960

PATIENT
  Sex: Female

DRUGS (4)
  1. MYRBETRIQ [Suspect]
     Active Substance: MIRABEGRON
     Indication: Hypertonic bladder
     Dosage: 50 MG, ONCE DAILY (TAKEN FOR 1 MONTH EXACTLY 30 DAYS)
     Route: 048
     Dates: start: 202106
  2. MYRBETRIQ [Suspect]
     Active Substance: MIRABEGRON
     Indication: Dysuria
     Route: 048
     Dates: start: 202209
  3. MYRBETRIQ [Suspect]
     Active Substance: MIRABEGRON
     Indication: Hypertonic bladder
     Route: 048
     Dates: start: 20220805, end: 202209
  4. MYRBETRIQ [Suspect]
     Active Substance: MIRABEGRON
     Indication: Dysuria

REACTIONS (2)
  - Drug ineffective [Unknown]
  - Inability to afford medication [Not Recovered/Not Resolved]
